FAERS Safety Report 21323584 (Version 2)
Quarter: 2022Q3

REPORT INFORMATION
  Report Type: Report from Study
  Country: IT (occurrence: IT)
  Receive Date: 20220912
  Receipt Date: 20220920
  Transmission Date: 20221026
  Serious: Yes (Hospitalization)
  Sender: FDA-Public Use
  Company Number: IT-002147023-NVSC2022IT154064

PATIENT

DRUGS (21)
  1. RUXOLITINIB [Suspect]
     Active Substance: RUXOLITINIB
     Indication: Myelofibrosis
     Dosage: 10 MG, BID
     Route: 048
     Dates: start: 20210609, end: 20210830
  2. RUXOLITINIB [Suspect]
     Active Substance: RUXOLITINIB
     Dosage: 15 MG, BID
     Route: 048
     Dates: start: 20210831, end: 20220110
  3. RUXOLITINIB [Suspect]
     Active Substance: RUXOLITINIB
     Dosage: 10 MG, BID
     Route: 048
     Dates: start: 20220111
  4. NAVITOCLAX [Suspect]
     Active Substance: NAVITOCLAX
     Indication: Myelofibrosis
     Dosage: 200 MG ,1 IN 1 D (CYCLE = 21 DAYS)
     Route: 048
     Dates: start: 20210609, end: 20210630
  5. NAVITOCLAX [Suspect]
     Active Substance: NAVITOCLAX
     Dosage: 100 MG ,1 IN 1 D (CYCLE 21 DAYS)
     Route: 048
     Dates: start: 20210706, end: 20210926
  6. NAVITOCLAX [Suspect]
     Active Substance: NAVITOCLAX
     Dosage: 200 MG 1 IN 1 D (CYCLE 21 DAYS)
     Route: 048
     Dates: start: 20210927, end: 20220613
  7. NAVITOCLAX [Suspect]
     Active Substance: NAVITOCLAX
     Dosage: 200 MG, 1 IN 1 D (CYCLE  21 DAYS) (ONGOING)
     Route: 048
     Dates: start: 20220624
  8. SIMVASTATIN [Concomitant]
     Active Substance: SIMVASTATIN
     Indication: Carotid artery stenosis
     Dosage: 100 MG, QD
     Route: 048
     Dates: start: 2020
  9. PANTOPRAZOLE [Concomitant]
     Active Substance: PANTOPRAZOLE
     Indication: Gastrooesophageal reflux disease
     Dosage: 40 MG, QD
     Route: 048
     Dates: start: 2020
  10. ALLOPURINOL [Concomitant]
     Active Substance: ALLOPURINOL
     Indication: Hyperuricaemia
     Dosage: 300 MG, QD
     Route: 048
     Dates: start: 2017
  11. FUROSEMIDE [Concomitant]
     Active Substance: FUROSEMIDE
     Indication: Hypertension
     Dosage: 25 MG, QD
     Route: 048
     Dates: start: 2021
  12. BISOPROLOL [Concomitant]
     Active Substance: BISOPROLOL
     Indication: Hypertension
     Dosage: 2.5 MG, QD
     Route: 048
     Dates: start: 2021
  13. RAMIPRIL [Concomitant]
     Active Substance: RAMIPRIL
     Indication: Hypertension
     Dosage: 2.5 MG, QD
     Route: 048
     Dates: start: 2021
  14. PREGABALIN [Concomitant]
     Active Substance: PREGABALIN
     Indication: Radiculopathy
     Dosage: 25 MG, QD
     Route: 048
     Dates: start: 20210714
  15. FENTANYL [Concomitant]
     Active Substance: FENTANYL
     Indication: Radiculopathy
     Dosage: 25 UG, (25 MCG,1 IN 73 HR)
     Route: 062
     Dates: start: 20210826
  16. ASPIRIN [Concomitant]
     Active Substance: ASPIRIN
     Indication: Thrombosis
     Dosage: 50 MG, (100 MG,1 IN 2 D)
     Route: 048
     Dates: start: 20210927
  17. DEFERASIROX [Concomitant]
     Active Substance: DEFERASIROX
     Indication: Iron overload
     Dosage: 180 MG (360 MG,1 IN 2 D)
     Route: 048
     Dates: start: 20211011
  18. CALCIUM CARBONATE [Concomitant]
     Active Substance: CALCIUM CARBONATE
     Indication: Blood calcium decreased
     Dosage: 0.5 GM (1 GM,1 IN 2 D)
     Route: 048
     Dates: start: 20210111
  19. MAGNESIUM [Concomitant]
     Active Substance: MAGNESIUM
     Indication: Prophylaxis
     Dosage: 1 BAG (1 IN 2 D)
     Route: 048
     Dates: start: 20210111
  20. LOPERAMIDE [Concomitant]
     Active Substance: LOPERAMIDE
     Indication: Diarrhoea
     Dosage: 2 MG AS REQUIRED (ONGOING)
     Route: 048
     Dates: start: 20220505
  21. METOCLOPRAMIDE [Concomitant]
     Active Substance: METOCLOPRAMIDE
     Indication: Nausea
     Dosage: 10 MG AS REQUIRED (ONGOING)
     Route: 048
     Dates: start: 20220505

REACTIONS (1)
  - Pyelonephritis [Recovered/Resolved]

NARRATIVE: CASE EVENT DATE: 20220614
